FAERS Safety Report 4745732-0 (Version None)
Quarter: 2005Q3

REPORT INFORMATION
  Report Type: 
  Country: None (occurrence: None)
  Receive Date: 20050816
  Receipt Date: 20050808
  Transmission Date: 20060218
  Serious: Yes (Death, Other)
  Sender: FDA-Public Use
  Company Number: PHNU2005DE02818

PATIENT
  Age: 77 Year
  Sex: Female

DRUGS (1)
  1. ZOMETA [Suspect]
     Indication: MASTOCYTOSIS
     Dosage: 4 MG, QMO

REACTIONS (4)
  - ACUTE LEUKAEMIA [None]
  - ASEPTIC NECROSIS BONE [None]
  - MALIGNANT NEOPLASM PROGRESSION [None]
  - ORAL SURGERY [None]
